FAERS Safety Report 7579923-0 (Version None)
Quarter: 2011Q2

REPORT INFORMATION
  Report Type: 
  Country: None (occurrence: None)
  Receive Date: 20110629
  Receipt Date: 20110615
  Transmission Date: 20111010
  Serious: Yes (Other)
  Sender: FDA-Public Use
  Company Number: IT-CELGENEUS-083-21880-11062141

PATIENT

DRUGS (6)
  1. REVLIMID [Suspect]
     Indication: MULTIPLE MYELOMA
     Dosage: 25 MILLIGRAM
     Route: 048
  2. REVLIMID [Suspect]
     Dosage: 10 MILLIGRAM
     Route: 048
  3. MELPHALAN HYDROCHLORIDE [Suspect]
     Indication: MULTIPLE MYELOMA
     Dosage: .18 MILLIGRAM/KILOGRAM
     Route: 065
  4. DEXAMETHASONE [Suspect]
     Indication: MULTIPLE MYELOMA
     Dosage: 40 MILLIGRAM
     Route: 065
  5. PREDNISONE [Suspect]
     Indication: MULTIPLE MYELOMA
     Dosage: 2 MILLIGRAM/KILOGRAM
     Route: 065
  6. MELPHALAN HYDROCHLORIDE [Suspect]
     Dosage: 200 MILLIGRAM/KILOGRAM
     Route: 065

REACTIONS (5)
  - NEOPLASM MALIGNANT [None]
  - INFECTION [None]
  - NEUTROPENIA [None]
  - DEEP VEIN THROMBOSIS [None]
  - GASTROINTESTINAL TOXICITY [None]
